FAERS Safety Report 5485134-5 (Version None)
Quarter: 2007Q4

REPORT INFORMATION
  Report Type: 
  Country: None (occurrence: None)
  Receive Date: 20071011
  Receipt Date: 20070926
  Transmission Date: 20080405
  Serious: Yes (Hospitalization, Other)
  Sender: FDA-Public Use
  Company Number: 2007BI009268

PATIENT
  Age: 50 Year
  Sex: Male
  Weight: 76.2043 kg

DRUGS (2)
  1. TYSABRI [Suspect]
     Indication: MULTIPLE SCLEROSIS
     Dosage: 300 MG; QM; IV
     Route: 042
     Dates: start: 20070111
  2. TYSABRI [Suspect]
     Indication: MULTIPLE SCLEROSIS
     Dosage: 300 MG; QM; IV
     Route: 042
     Dates: start: 20070216, end: 20070101

REACTIONS (5)
  - ASTHENIA [None]
  - CHRONIC MYELOID LEUKAEMIA [None]
  - FATIGUE [None]
  - LYMPHOCYTE COUNT INCREASED [None]
  - NEUTROPHIL COUNT INCREASED [None]
